FAERS Safety Report 7884984-5 (Version None)
Quarter: 2011Q4

REPORT INFORMATION
  Report Type: 
  Country: None (occurrence: None)
  Receive Date: 20111102
  Receipt Date: 20111024
  Transmission Date: 20120403
  Serious: Yes (Hospitalization)
  Sender: FDA-Public Use
  Company Number: FR-ASTRAZENECA-2011SE64507

PATIENT
  Sex: Female

DRUGS (4)
  1. DIGOXIN [Concomitant]
  2. CANDESARTAN CILEXETIL AND HYDROCHLOROTHIAZIDE [Suspect]
     Indication: HYPERTENSION
     Route: 048
     Dates: end: 20111003
  3. SINTROM [Concomitant]
  4. LERCANIDIPINE [Concomitant]
     Indication: HYPERTENSION

REACTIONS (3)
  - GAIT DISTURBANCE [None]
  - HYPONATRAEMIA [None]
  - ASTHENIA [None]
